FAERS Safety Report 4567943-X (Version None)
Quarter: 2005Q1

REPORT INFORMATION
  Report Type: 
  Country: None (occurrence: None)
  Receive Date: 20050202
  Receipt Date: 20040630
  Transmission Date: 20050727
  Serious: Yes (Hospitalization, Disabling)
  Sender: FDA-Public Use
  Company Number: US-GLAXOSMITHKLINE-A0516612A

PATIENT
  Age: 53 Year
  Sex: Female

DRUGS (2)
  1. NAVELBINE [Suspect]
     Indication: BREAST CANCER
     Dosage: 30MGM2 SINGLE DOSE
     Route: 042
     Dates: start: 20040624, end: 20040624
  2. SENOKOT [Concomitant]

REACTIONS (2)
  - CONSTIPATION [None]
  - ILEUS [None]
